FAERS Safety Report 9362820 (Version 1)
Quarter: 2013Q2

REPORT INFORMATION
  Report Type: Spontaneous
  Country: US (occurrence: US)
  Receive Date: 20130624
  Receipt Date: 20130624
  Transmission Date: 20140414
  Serious: Yes (Other)
  Sender: FDA-Public Use
  Company Number: US-AMGEN-USASP2013043761

PATIENT
  Sex: Female

DRUGS (7)
  1. PROLIA [Suspect]
     Indication: OSTEOPOROSIS POSTMENOPAUSAL
     Dosage: UNK
     Dates: start: 201303
  2. LEVOXYL [Concomitant]
  3. XALATAN [Concomitant]
  4. CALCIUM [Concomitant]
  5. MULTIVITAMIN                       /00097801/ [Concomitant]
  6. VITAMIN D                          /00107901/ [Concomitant]
  7. VITAMIN E                          /00110501/ [Concomitant]

REACTIONS (4)
  - Hand fracture [Unknown]
  - Fall [Unknown]
  - Pain [Unknown]
  - Mobility decreased [Unknown]
